FAERS Safety Report 7828993-0 (Version None)
Quarter: 2011Q4

REPORT INFORMATION
  Report Type: 
  Country: None (occurrence: None)
  Receive Date: 20111020
  Receipt Date: 20111017
  Transmission Date: 20120403
  Serious: Yes (Life-Threatening)
  Sender: FDA-Public Use
  Company Number: PL-TYCO HEALTHCARE/MALLINCKRODT-T201102080

PATIENT
  Age: 50 Year
  Sex: Female

DRUGS (1)
  1. OPTIRAY 160 [Suspect]
     Indication: PRODUCT USED FOR UNKNOWN INDICATION
     Dosage: 100 ML, SINGLE
     Route: 042
     Dates: start: 20111014, end: 20111014

REACTIONS (2)
  - RESPIRATORY ARREST [None]
  - DYSPNOEA [None]
